FAERS Safety Report 11706200 (Version 1)
Quarter: 2015Q4

REPORT INFORMATION
  Report Type: Spontaneous
  Country: US (occurrence: US)
  Receive Date: 20151104
  Receipt Date: 20151104
  Transmission Date: 20160304
  Serious: No
  Sender: FDA-Public Use
  Company Number: US-ELI_LILLY_AND_COMPANY-US201012004160

PATIENT
  Sex: Female

DRUGS (3)
  1. FORTEO [Suspect]
     Active Substance: TERIPARATIDE
     Dosage: 20 UG, DAILY (1/D)
     Route: 065
  2. FORTEO [Suspect]
     Active Substance: TERIPARATIDE
     Dosage: 20 UG, UNK
     Route: 065
     Dates: start: 201010
  3. VITAMIN D [Concomitant]
     Active Substance: CHOLECALCIFEROL

REACTIONS (9)
  - Fatigue [Unknown]
  - Heart rate increased [Unknown]
  - Vertigo [Unknown]
  - Back pain [Unknown]
  - Neck pain [Unknown]
  - Dysgeusia [Unknown]
  - Bone pain [Unknown]
  - Dizziness [Unknown]
  - Muscle spasms [Unknown]
